FAERS Safety Report 22629124 (Version 1)
Quarter: 2023Q2

REPORT INFORMATION
  Report Type: Spontaneous
  Country: US (occurrence: None)
  Receive Date: 20230621
  Receipt Date: 20230621
  Transmission Date: 20230722
  Serious: Yes (Other)
  Sender: FDA-Public Use
  Company Number: None

PATIENT
  Age: 63 Year
  Sex: Female

DRUGS (12)
  1. INGREZZA [Suspect]
     Active Substance: VALBENAZINE
     Indication: Bipolar disorder
     Dosage: FREQUENCY : DAILY;?
     Route: 048
     Dates: start: 20230613, end: 20230617
  2. Zyprexa 2.5 [Concomitant]
  3. Synthroid 100 [Concomitant]
  4. MIRAPEX [Concomitant]
     Active Substance: PRAMIPEXOLE DIHYDROCHLORIDE
  5. METOPROLOL [Concomitant]
     Active Substance: METOPROLOL
  6. LOSARTAN [Concomitant]
     Active Substance: LOSARTAN
  7. LASIX [Concomitant]
     Active Substance: FUROSEMIDE
  8. GABAPENTIN [Concomitant]
     Active Substance: GABAPENTIN
  9. FLUVOXAMINE [Concomitant]
     Active Substance: FLUVOXAMINE
  10. DITROPAN [Concomitant]
     Active Substance: OXYBUTYNIN CHLORIDE
  11. CRESTOR [Concomitant]
     Active Substance: ROSUVASTATIN CALCIUM
  12. COGENTIN [Concomitant]
     Active Substance: BENZTROPINE MESYLATE

REACTIONS (6)
  - Brain fog [None]
  - Dysarthria [None]
  - Dyskinesia [None]
  - Tremor [None]
  - Drooling [None]
  - Insomnia [None]

NARRATIVE: CASE EVENT DATE: 20230617
